FAERS Safety Report 9064429 (Version 1)
Quarter: 2013Q1

REPORT INFORMATION
  Report Type: Spontaneous
  Country: FR (occurrence: FR)
  Receive Date: 20130213
  Receipt Date: 20130213
  Transmission Date: 20140127
  Serious: Yes (Hospitalization)
  Sender: FDA-Public Use
  Company Number: FR-PFIZER INC-2013050057

PATIENT
  Age: 89 Year
  Sex: Female

DRUGS (14)
  1. SOLU-MEDROL [Suspect]
     Dosage: UNK
     Route: 042
     Dates: start: 20121010, end: 20121010
  2. PREVISCAN [Suspect]
     Dosage: 20 MG
     Route: 048
     Dates: end: 20121010
  3. BACTRIM FORTE [Suspect]
     Indication: LUNG INFECTION
     Dosage: UNK
     Route: 048
     Dates: start: 20121008, end: 20121010
  4. BISOPROLOL FUMARATE [Concomitant]
     Dosage: UNK
     Route: 048
  5. PARACETAMOL [Concomitant]
     Dosage: UNK
     Route: 048
  6. NOVONORM [Concomitant]
     Dosage: UNK
     Route: 048
     Dates: end: 20121010
  7. ZYLORIC [Concomitant]
     Dosage: UNK
     Route: 048
  8. ECONAZOLE [Concomitant]
     Dosage: UNK
  9. FONGAMIL [Concomitant]
     Dosage: UNK
     Route: 003
  10. IMOVANE [Concomitant]
     Dosage: 1 DF, 1X/DAY
     Route: 048
     Dates: end: 20121010
  11. KALEORID [Concomitant]
     Dosage: UNK
     Route: 048
  12. LASILIX [Concomitant]
     Dosage: UNK
     Route: 048
  13. MUPIDERM [Concomitant]
     Dosage: UNK
     Route: 003
  14. NITRIDERM [Concomitant]
     Dosage: UNK
     Route: 062

REACTIONS (1)
  - International normalised ratio increased [Recovered/Resolved]
